FAERS Safety Report 5513990-0 (Version None)
Quarter: 2007Q4

REPORT INFORMATION
  Report Type: 
  Country: None (occurrence: None)
  Receive Date: 20071113
  Receipt Date: 20071101
  Transmission Date: 20080405
  Serious: Yes (Hospitalization)
  Sender: FDA-Public Use
  Company Number: US-SOLVAY-00207034527

PATIENT
  Age: 23945 Day
  Sex: Male
  Weight: 116.2 kg

DRUGS (19)
  1. GLYBURIDE [Concomitant]
     Indication: DIABETES MELLITUS
     Dosage: DAILY DOSE: 5 MILLIGRAM(S)
     Route: 048
     Dates: start: 20060201
  2. TESTOSTERONE [Suspect]
     Indication: HYPOGONADISM
     Dosage: DAILY DOSE: 2.5 GRAM(S)
     Route: 062
     Dates: start: 20070413, end: 20070514
  3. TESTOSTERONE [Suspect]
     Dosage: DAILY DOSE: 3.75 GRAM(S)
     Route: 062
     Dates: start: 20070515, end: 20070528
  4. TESTOSTERONE [Suspect]
     Dosage: DAILY DOSE: 5 GRAM(S)
     Route: 062
     Dates: start: 20070529
  5. LASIX [Concomitant]
     Indication: OEDEMA
     Dosage: DAILY DOSE: 20 MILLIGRAM(S)
     Route: 048
  6. ASPIRIN [Concomitant]
     Indication: CARDIOVASCULAR EVENT PROPHYLAXIS
     Dosage: DAILY DOSE: 81 MILLIGRAM(S)
     Route: 048
  7. POTASSIUM CHLORIDE [Concomitant]
     Indication: MINERAL SUPPLEMENTATION
     Dosage: DAILY DOSE: 20 MILLIGRAM(S)
     Route: 048
  8. ULTRACET [Concomitant]
     Indication: PAIN
     Dosage: DAILY DOSE:  37.5/325 MG PRN
     Route: 048
  9. METFORMIN HCL [Concomitant]
     Indication: DIABETES MELLITUS
     Dosage: DAILY DOSE: 1000 MILLIGRAM(S)
     Route: 048
  10. BYETTA [Concomitant]
     Indication: DIABETES MELLITUS
     Dosage: DAILY DOSE: 20 MILLIGRAM(S)
     Route: 058
     Dates: start: 20060721, end: 20070702
  11. TRICOR [Concomitant]
     Indication: BLOOD CHOLESTEROL INCREASED
     Dosage: DAILY DOSE: 145 MILLIGRAM(S)
     Route: 048
     Dates: start: 20070323
  12. CLONIDINE [Concomitant]
     Indication: HYPERTENSION
     Dosage: DAILY DOSE: 1.5 MILLIGRAM(S)
     Route: 048
     Dates: start: 20060509, end: 20070612
  13. CLONIDINE [Concomitant]
     Dosage: DAILY DOSE: .9 MILLIGRAM(S)
     Route: 048
     Dates: start: 20070613
  14. TOPROL-XL [Concomitant]
     Indication: HYPERTENSION
     Dosage: DAILY DOSE: 50 MILLIGRAM(S)
     Route: 048
     Dates: start: 20020101, end: 20070925
  15. TOPROL-XL [Concomitant]
     Dosage: DAILY DOSE: 100 MILLIGRAM(S)
     Route: 048
     Dates: start: 20070925
  16. DIOVAN [Concomitant]
     Indication: HYPERTENSION
     Dosage: DAILY DOSE: 320 MILLIGRAM(S)
     Route: 048
     Dates: start: 20051010
  17. CATAPRES [Concomitant]
     Indication: HYPERTENSION
     Dosage: DAILY DOSE: .45 MILLIGRAM(S)
     Route: 048
     Dates: start: 20060315, end: 20070718
  18. MELOXICAM [Concomitant]
     Indication: PAIN
     Dosage: DAILY DOSE: 15 MILLIGRAM(S)
     Route: 048
     Dates: start: 20070703, end: 20070712
  19. DOXYCYCLINE [Concomitant]
     Indication: BRONCHITIS
     Dosage: DAILY DOSE: 200 MILLIGRAM(S)
     Route: 048
     Dates: start: 20070703, end: 20070712

REACTIONS (6)
  - CHEST PAIN [None]
  - HYPERSENSITIVITY [None]
  - MALIGNANT HYPERTENSION [None]
  - NAUSEA [None]
  - POLYCYTHAEMIA [None]
  - SUPRAVENTRICULAR TACHYCARDIA [None]
